FAERS Safety Report 17849538 (Version 1)
Quarter: 2020Q2

REPORT INFORMATION
  Report Type: Spontaneous
  Country: IR (occurrence: IR)
  Receive Date: 20200602
  Receipt Date: 20200602
  Transmission Date: 20200714
  Serious: Yes (Life-Threatening, Hospitalization, Disabling, Other)
  Sender: FDA-Public Use
  Company Number: IR-IPSEN BIOPHARMACEUTICALS, INC.-2020-09231

PATIENT
  Age: 75 Year
  Sex: Male

DRUGS (1)
  1. DYSPORT [Suspect]
     Active Substance: ABOBOTULINUMTOXINA
     Indication: FACIAL SPASM

REACTIONS (5)
  - Carotid artery aneurysm [Unknown]
  - Periorbital pain [Unknown]
  - Eyelid ptosis [Recovering/Resolving]
  - Visual acuity reduced [Unknown]
  - IIIrd nerve paralysis [Unknown]
